FAERS Safety Report 10214114 (Version 1)
Quarter: 2014Q2

REPORT INFORMATION
  Report Type: Spontaneous
  Country: JP (occurrence: JP)
  Receive Date: 20140603
  Receipt Date: 20140603
  Transmission Date: 20141212
  Serious: Yes (Hospitalization)
  Sender: FDA-Public Use
  Company Number: JP-ELI_LILLY_AND_COMPANY-JP201405008492

PATIENT
  Age: 73 Year
  Sex: Male

DRUGS (4)
  1. ZYPREXA [Suspect]
     Indication: BIPOLAR I DISORDER
     Dosage: 15 MG, QD
     Route: 048
  2. CARBAMAZEPINE [Suspect]
     Indication: AGGRESSION
     Route: 048
  3. CARBAMAZEPINE [Suspect]
     Indication: PERSECUTORY DELUSION
  4. PREDNISOLONE [Suspect]
     Indication: STEVENS-JOHNSON SYNDROME
     Dosage: 60 MG, QD
     Route: 048

REACTIONS (3)
  - Stevens-Johnson syndrome [Unknown]
  - Mental status changes [Recovered/Resolved]
  - Glucose tolerance impaired [Unknown]
